FAERS Safety Report 25974381 (Version 1)
Quarter: 2025Q4

REPORT INFORMATION
  Report Type: Spontaneous
  Country: US (occurrence: None)
  Receive Date: 20251029
  Receipt Date: 20251029
  Transmission Date: 20260117
  Serious: Yes (Hospitalization)
  Sender: FDA-CTU
  Company Number: None

PATIENT
  Age: 58 Year
  Sex: Male
  Weight: 106.59 kg

DRUGS (3)
  1. CYTARABINE [Suspect]
     Active Substance: CYTARABINE
     Dates: end: 20250317
  2. METHOTREXATE [Suspect]
     Active Substance: METHOTREXATE
     Dosage: OTHER FREQUENCY : 12.5MG IT AND 2180MG IV ;?
     Dates: end: 20250314
  3. PONATINIB [Suspect]
     Active Substance: PONATINIB
     Dosage: OTHER FREQUENCY : PONATINIB HELD DURING HOSPITALIZATION ;?
     Dates: end: 20250330

REACTIONS (22)
  - Pyrexia [None]
  - Joint swelling [None]
  - Therapy interrupted [None]
  - Neutropenia [None]
  - Catheter site pain [None]
  - Vascular device infection [None]
  - Catheter site cellulitis [None]
  - Bacteraemia [None]
  - Chest pain [None]
  - Tachycardia [None]
  - Pain [None]
  - ECG signs of myocardial ischaemia [None]
  - Troponin increased [None]
  - Hypotension [None]
  - Coronary artery stenosis [None]
  - Seizure [None]
  - Agonal respiration [None]
  - Ventricular fibrillation [None]
  - Cardiac arrest [None]
  - Ventricular tachycardia [None]
  - Coronary artery thrombosis [None]
  - Therapy cessation [None]

NARRATIVE: CASE EVENT DATE: 20250329
